FAERS Safety Report 6249544-0 (Version None)
Quarter: 2009Q2

REPORT INFORMATION
  Report Type: 
  Country: None (occurrence: None)
  Receive Date: 20090629
  Receipt Date: 20090622
  Transmission Date: 20091009
  Serious: Yes (Hospitalization)
  Sender: FDA-Public Use
  Company Number: US-ELI_LILLY_AND_COMPANY-US200905000037

PATIENT
  Sex: Female

DRUGS (4)
  1. HUMALOG [Suspect]
     Dates: start: 20070101
  2. HUMALOG [Suspect]
     Dosage: UNK, UNK
     Dates: start: 20070101
  3. NUVARING [Concomitant]
  4. DIFLUCAN [Concomitant]

REACTIONS (7)
  - BLOOD GLUCOSE INCREASED [None]
  - BRONCHITIS [None]
  - DIABETIC KETOACIDOSIS [None]
  - DRUG DOSE OMISSION [None]
  - GLYCOSYLATED HAEMOGLOBIN INCREASED [None]
  - UPPER RESPIRATORY TRACT INFECTION [None]
  - URINE ALCOHOL TEST POSITIVE [None]
